FAERS Safety Report 5456195-4 (Version None)
Quarter: 2007Q3

REPORT INFORMATION
  Report Type: 
  Country: None (occurrence: None)
  Receive Date: 20070914
  Receipt Date: 20070914
  Transmission Date: 20080115
  Serious: Yes (Hospitalization)
  Sender: FDA-Public Use
  Company Number: None

PATIENT
  Sex: Female
  Weight: 53.6 kg

DRUGS (3)
  1. CARBOPLATIN [Suspect]
     Dosage: 730 MG
  2. TAXOTERE [Suspect]
     Dosage: 95 MG
  3. TAXOL [Suspect]
     Dosage: 88 MG

REACTIONS (7)
  - ABDOMINAL PAIN [None]
  - DYSURIA [None]
  - FEBRILE NEUTROPENIA [None]
  - PHARYNGEAL ERYTHEMA [None]
  - PHARYNGOLARYNGEAL PAIN [None]
  - VOMITING [None]
  - WHITE BLOOD CELL COUNT DECREASED [None]
